FAERS Safety Report 23044036 (Version 1)
Quarter: 2023Q4

REPORT INFORMATION
  Report Type: Report from Study
  Country: US (occurrence: US)
  Receive Date: 20231009
  Receipt Date: 20231009
  Transmission Date: 20240110
  Serious: Yes (Hospitalization, Other)
  Sender: FDA-Public Use
  Company Number: US-ABBVIE-5439812

PATIENT
  Age: 9 Year
  Sex: Male

DRUGS (1)
  1. VENCLEXTA [Suspect]
     Active Substance: VENETOCLAX
     Indication: Acute myeloid leukaemia
     Dosage: CESSATION DATE 2023
     Route: 048
     Dates: start: 20230816

REACTIONS (2)
  - Spinal laminectomy [Unknown]
  - Fluid retention [Unknown]

NARRATIVE: CASE EVENT DATE: 20230819
